FAERS Safety Report 10562255 (Version 1)
Quarter: 2014Q4

REPORT INFORMATION
  Report Type: Spontaneous
  Country: CH (occurrence: None)
  Receive Date: 20141031
  Receipt Date: 20141031
  Transmission Date: 20150529
  Serious: Yes (Hospitalization, Disabling)
  Sender: FDA-Public Use
  Company Number: IMP_07991_2014

PATIENT
  Age: 91 Year
  Sex: Female

DRUGS (1)
  1. DIGOXIN. [Suspect]
     Active Substance: DIGOXIN
     Indication: ATRIAL FIBRILLATION

REACTIONS (12)
  - Nausea [None]
  - Vision blurred [None]
  - Illusion [None]
  - Hallucination, visual [None]
  - Autonomic nervous system imbalance [None]
  - Toxicity to various agents [None]
  - Activities of daily living impaired [None]
  - Dysphagia [None]
  - Cardioactive drug level increased [None]
  - Vomiting [None]
  - Photopsia [None]
  - Chromatopsia [None]
